FAERS Safety Report 18292342 (Version 5)
Quarter: 2021Q2

REPORT INFORMATION
  Report Type: Spontaneous
  Country: DE (occurrence: DE)
  Receive Date: 20200921
  Receipt Date: 20210405
  Transmission Date: 20210717
  Serious: Yes (Other)
  Sender: FDA-Public Use
  Company Number: DE-BRISTOL-MYERS SQUIBB COMPANY-BMS-2020-075414

PATIENT
  Age: 56 Year
  Sex: Male

DRUGS (2)
  1. OPDIVO [Suspect]
     Active Substance: NIVOLUMAB
     Indication: PRODUCT USED FOR UNKNOWN INDICATION
     Dosage: UNK
     Route: 065
     Dates: start: 201902
  2. YERVOY [Suspect]
     Active Substance: IPILIMUMAB
     Indication: PRODUCT USED FOR UNKNOWN INDICATION
     Dosage: UNK
     Route: 065
     Dates: start: 201902

REACTIONS (17)
  - Abdominal discomfort [Unknown]
  - Tremor [Unknown]
  - Muscular weakness [Unknown]
  - Paraplegia [Recovering/Resolving]
  - Abdominal pain [Unknown]
  - Hypoaesthesia [Unknown]
  - Urinary incontinence [Unknown]
  - Pyrexia [Unknown]
  - Fatigue [Unknown]
  - Confusional state [Unknown]
  - Generalised tonic-clonic seizure [Unknown]
  - Myalgia [Unknown]
  - Dysstasia [Unknown]
  - Gait disturbance [Unknown]
  - Constipation [Unknown]
  - Guillain-Barre syndrome [Recovering/Resolving]
  - Dysaesthesia [Unknown]

NARRATIVE: CASE EVENT DATE: 201907
